FAERS Safety Report 18674121 (Version 1)
Quarter: 2020Q4

REPORT INFORMATION
  Report Type: Spontaneous
  Country: DE (occurrence: DE)
  Receive Date: 20201229
  Receipt Date: 20201229
  Transmission Date: 20210114
  Serious: Yes (Hospitalization, Other)
  Sender: FDA-Public Use
  Company Number: DE-ACCORD-212513

PATIENT
  Age: 74 Year
  Sex: Male
  Weight: 48 kg

DRUGS (11)
  1. DAXAS [Concomitant]
     Active Substance: ROFLUMILAST
     Dosage: 500 MG, 1-0-0-0
  2. COLECALCIFEROL [Concomitant]
     Active Substance: CHOLECALCIFEROL
     Dosage: 1000 IE, 1-0-0-0
  3. MAGNESIUM HYDROXIDE. [Concomitant]
     Active Substance: MAGNESIUM HYDROXIDE
     Dosage: 500 MG, 1-0-0-0
  4. ACETYLSALICYLIC ACID [Suspect]
     Active Substance: ASPIRIN
     Indication: PRODUCT USED FOR UNKNOWN INDICATION
     Dosage: 100 MG, 1-0-0-0
  5. INSUMAN COMB [Concomitant]
     Active Substance: INSULIN HUMAN
     Dosage: 30-70 IE, 10-0-5-0
  6. METOPROLOL. [Concomitant]
     Active Substance: METOPROLOL
     Dosage: 23.75 MG, 1-0-1-0
  7. ULTIBRO [Concomitant]
     Active Substance: GLYCOPYRRONIUM\INDACATEROL
     Dosage: 85-43 UG, 1-0-0-0
  8. TORASEMIDE [Suspect]
     Active Substance: TORSEMIDE
     Indication: PRODUCT USED FOR UNKNOWN INDICATION
     Dosage: 10 MG, 1-0-0-0
  9. AMBROXOL [Concomitant]
     Active Substance: AMBROXOL
     Dosage: 30 MG, 1-1-1-0
  10. RAMIPRIL. [Suspect]
     Active Substance: RAMIPRIL
     Indication: PRODUCT USED FOR UNKNOWN INDICATION
     Dosage: 5 MG, 1-0-1-0
  11. SIMVASTATIN. [Concomitant]
     Active Substance: SIMVASTATIN
     Dosage: 20 MG, 0-0-2-0

REACTIONS (7)
  - Internal haemorrhage [Unknown]
  - Diarrhoea [Unknown]
  - Pallor [Unknown]
  - Decreased appetite [Unknown]
  - Condition aggravated [Unknown]
  - General physical health deterioration [Unknown]
  - Haematochezia [Unknown]

NARRATIVE: CASE EVENT DATE: 202009
